FAERS Safety Report 13224142 (Version 1)
Quarter: 2017Q1

REPORT INFORMATION
  Report Type: Other
  Country: US (occurrence: US)
  Receive Date: 20170212
  Receipt Date: 20170212
  Transmission Date: 20170428
  Serious: No
  Sender: FDA-Public Use
  Company Number: US-ACORDA-ACO_132226_2016

PATIENT
  Age: 48 Year
  Sex: Female

DRUGS (3)
  1. IBUPROFEN. [Concomitant]
     Active Substance: IBUPROFEN
     Indication: PAIN
     Dosage: 400-800 MG, TID PRN
     Route: 065
  2. AMPYRA [Suspect]
     Active Substance: DALFAMPRIDINE
     Indication: GAIT DISTURBANCE
     Dosage: 10 MG, Q 12 HRS
     Route: 048
     Dates: start: 201501
  3. AMPYRA [Suspect]
     Active Substance: DALFAMPRIDINE
     Indication: MULTIPLE SCLEROSIS

REACTIONS (10)
  - Lead urine increased [Unknown]
  - Laboratory test abnormal [Unknown]
  - Culture urine positive [Unknown]
  - Urine analysis abnormal [Unknown]
  - Protein urine present [Unknown]
  - CD4 lymphocytes abnormal [Unknown]
  - Crystal urine present [Unknown]
  - B-lymphocyte count decreased [Unknown]
  - Urinary sediment present [Unknown]
  - White blood cells urine positive [Unknown]

NARRATIVE: CASE EVENT DATE: 20161207
